FAERS Safety Report 22256114 (Version 1)
Quarter: 2023Q2

REPORT INFORMATION
  Report Type: Report from Study
  Country: BR (occurrence: BR)
  Receive Date: 20230426
  Receipt Date: 20230426
  Transmission Date: 20230721
  Serious: Yes (Death, Life-Threatening, Hospitalization, Disabling, Other)
  Sender: FDA-Public Use
  Company Number: BR-BAXALTA-2016BLT007407AA

PATIENT
  Age: 26 Year
  Sex: Male
  Weight: 102 kg

DRUGS (6)
  1. HEMO-8R [Suspect]
     Active Substance: ANTIHEMOPHILIC FACTOR, HUMAN RECOMBINANT
     Indication: Factor VIII deficiency
     Dosage: UNK
     Route: 042
     Dates: start: 20160818
  2. HEMO-8R [Suspect]
     Active Substance: ANTIHEMOPHILIC FACTOR, HUMAN RECOMBINANT
     Indication: Prophylaxis
     Dosage: 2000 INTERNATIONAL UNIT
     Route: 042
     Dates: start: 20160921
  3. HEMO-8R [Suspect]
     Active Substance: ANTIHEMOPHILIC FACTOR, HUMAN RECOMBINANT
     Dosage: 5000 INTERNATIONAL UNIT, SINGLE
     Route: 042
     Dates: start: 20160921
  4. HEMO-8R [Suspect]
     Active Substance: ANTIHEMOPHILIC FACTOR, HUMAN RECOMBINANT
     Dosage: 2000 INTERNATIONAL UNIT, BID
     Route: 042
     Dates: start: 20160921, end: 20160923
  5. GABALLON [Concomitant]
     Indication: Amnesia
     Dosage: UNK
     Route: 065
  6. REMILEV [Concomitant]
     Indication: Sleep disorder
     Dosage: UNK
     Route: 065

REACTIONS (2)
  - Craniocerebral injury [Fatal]
  - Accident [Fatal]

NARRATIVE: CASE EVENT DATE: 20160921
